FAERS Safety Report 25631436 (Version 1)
Quarter: 2025Q3

REPORT INFORMATION
  Report Type: Report from Study
  Country: GB (occurrence: GB)
  Receive Date: 20250801
  Receipt Date: 20250801
  Transmission Date: 20251020
  Serious: Yes (Hospitalization, Other)
  Sender: BAXTER
  Company Number: GB-BAXTER-2025BAX018905

PATIENT
  Age: 41 Year
  Sex: Male

DRUGS (2)
  1. CLINIMIX E [Suspect]
     Active Substance: ALANINE\AMINO ACIDS\ARGININE\CALCIUM CHLORIDE\DEXTROSE\GLYCINE\HISTIDINE\ISOLEUCINE\LEUCINE\LYSINE\M
     Indication: Parenteral nutrition
     Route: 042
     Dates: start: 20250723, end: 20250724
  2. UNSPECIFIED INGREDIENT [Suspect]
     Active Substance: UNSPECIFIED INGREDIENT
     Route: 065

REACTIONS (5)
  - Syncope [Not Recovered/Not Resolved]
  - Skin laceration [Unknown]
  - Head injury [Unknown]
  - Nausea [Not Recovered/Not Resolved]
  - Vomiting [Not Recovered/Not Resolved]

NARRATIVE: CASE EVENT DATE: 20250723
